FAERS Safety Report 24306287 (Version 1)
Quarter: 2024Q3

REPORT INFORMATION
  Report Type: Spontaneous
  Country: US (occurrence: US)
  Receive Date: 20240911
  Receipt Date: 20240911
  Transmission Date: 20241017
  Serious: Yes (Hospitalization)
  Sender: LUOXIN AUROVITAS PHARMA(CHENGDU)
  Company Number: US-LUOXIN-LUX-2024-US-LIT-00051

PATIENT
  Age: 54 Year
  Sex: Female

DRUGS (4)
  1. ALBUTEROL SULFATE [Suspect]
     Active Substance: ALBUTEROL SULFATE
     Indication: Asthma
     Route: 065
  2. DUPILUMAB [Concomitant]
     Active Substance: DUPILUMAB
     Indication: Asthma
     Route: 065
  3. Fluticasone furoate/umeclidinium bromide/vilanterol [Concomitant]
     Indication: Asthma
     Route: 065
  4. MONTELUKAST [Concomitant]
     Active Substance: MONTELUKAST SODIUM
     Indication: Asthma
     Route: 065

REACTIONS (1)
  - Drug ineffective [Unknown]
